FAERS Safety Report 21723307 (Version 3)
Quarter: 2023Q2

REPORT INFORMATION
  Report Type: Spontaneous
  Country: US (occurrence: US)
  Receive Date: 20221213
  Receipt Date: 20230426
  Transmission Date: 20230722
  Serious: No
  Sender: FDA-Public Use
  Company Number: US-LEO Pharma-347087

PATIENT
  Age: 71 Year
  Sex: Male

DRUGS (9)
  1. ADBRY [Suspect]
     Active Substance: TRALOKINUMAB-LDRM
     Indication: Dermatitis atopic
     Dosage: DOSAGE : 600 MG SC ON DAY 0
     Route: 058
     Dates: start: 20221104
  2. ADBRY [Suspect]
     Active Substance: TRALOKINUMAB-LDRM
     Indication: Dermatitis atopic
     Dosage: DOSAGE : 600 MG SC ON DAY 0
     Route: 058
     Dates: start: 20221104
  3. ADBRY [Suspect]
     Active Substance: TRALOKINUMAB-LDRM
     Indication: Dermatitis atopic
     Dosage: DOSAGE : 600 MG SC ON DAY 0
     Route: 058
     Dates: start: 20221104
  4. ADBRY [Suspect]
     Active Substance: TRALOKINUMAB-LDRM
     Indication: Dermatitis atopic
     Dosage: DOSAGE : 600 MG SC ON DAY 0
     Route: 058
     Dates: start: 20221104
  5. ADBRY [Suspect]
     Active Substance: TRALOKINUMAB-LDRM
     Indication: Dermatitis atopic
     Dosage: DOSAGE : 300 MG EVERY OTHER WEEK
     Route: 058
     Dates: start: 20221106
  6. ADBRY [Suspect]
     Active Substance: TRALOKINUMAB-LDRM
     Indication: Dermatitis atopic
     Dosage: DOSAGE : 300 MG EVERY OTHER WEEK
     Route: 058
     Dates: start: 20221106
  7. ADBRY [Suspect]
     Active Substance: TRALOKINUMAB-LDRM
     Indication: Dermatitis atopic
     Dosage: DOSAGE : 300 MG EVERY OTHER WEEK
     Route: 058
     Dates: start: 20221106
  8. ADBRY [Suspect]
     Active Substance: TRALOKINUMAB-LDRM
     Indication: Dermatitis atopic
     Dosage: DOSAGE : 300 MG EVERY OTHER WEEK
     Route: 058
     Dates: start: 20221106
  9. Pednisone [Concomitant]
     Indication: Product used for unknown indication
     Dosage: 4 PILLS FOR 3 DAYS, THEN 3 PILLS FOR 3 DAYS, 2 PILLS FOR 3 DAYS, 1 PILL FOR 3 DAYS, 30 TABLETS
     Route: 048

REACTIONS (3)
  - Vision blurred [Not Recovered/Not Resolved]
  - Ocular discomfort [Recovered/Resolved]
  - Ocular hyperaemia [Unknown]

NARRATIVE: CASE EVENT DATE: 20221106
